FAERS Safety Report 25521753 (Version 2)
Quarter: 2025Q3

REPORT INFORMATION
  Report Type: Report from Study
  Country: US (occurrence: US)
  Receive Date: 20250706
  Receipt Date: 20250710
  Transmission Date: 20251020
  Serious: Yes (Hospitalization, Disabling)
  Sender: AMGEN
  Company Number: US-AMGEN-USASP2025128304

PATIENT
  Age: 66 Year
  Sex: Female

DRUGS (1)
  1. PROLIA [Suspect]
     Active Substance: DENOSUMAB
     Indication: Osteoporosis
     Route: 065

REACTIONS (3)
  - Accident [Unknown]
  - Shoulder fracture [Unknown]
  - Therapy interrupted [Unknown]

NARRATIVE: CASE EVENT DATE: 20240501
